FAERS Safety Report 5335254-0 (Version None)
Quarter: 2007Q2

REPORT INFORMATION
  Report Type: 
  Country: None (occurrence: None)
  Receive Date: 20070525
  Receipt Date: 20070514
  Transmission Date: 20071010
  Serious: Yes (Hospitalization, Other)
  Sender: FDA-Public Use
  Company Number: US-PFIZER INC-2007021351

PATIENT
  Sex: Male
  Weight: 117.5 kg

DRUGS (8)
  1. SUTENT [Suspect]
     Indication: RENAL CELL CARCINOMA STAGE UNSPECIFIED
     Route: 048
     Dates: start: 20060619, end: 20060709
  2. LISINOPRIL [Concomitant]
  3. COREG [Concomitant]
  4. SYNTHROID [Concomitant]
     Indication: HYPOTHYROIDISM
  5. LESCOL [Concomitant]
     Indication: HYPERLIPIDAEMIA
  6. LASIX [Concomitant]
  7. HUMALOG [Concomitant]
     Indication: DIABETES MELLITUS NON-INSULIN-DEPENDENT
     Dosage: TEXT:10 UNITS
  8. LANTUS [Concomitant]
     Indication: DIABETES MELLITUS NON-INSULIN-DEPENDENT
     Dosage: TEXT:25 UNITS-FREQ:AT BEDTIME

REACTIONS (4)
  - ANAEMIA [None]
  - BLOOD BILIRUBIN INCREASED [None]
  - JAUNDICE CHOLESTATIC [None]
  - RENAL FAILURE [None]
